FAERS Safety Report 6842497-3 (Version None)
Quarter: 2010Q3

REPORT INFORMATION
  Report Type: 
  Country: None (occurrence: None)
  Receive Date: 20100714
  Receipt Date: 20071213
  Transmission Date: 20110219
  Serious: No
  Sender: FDA-Public Use
  Company Number: US-PFIZER INC-2007062854

PATIENT
  Sex: Female
  Weight: 28.6 kg

DRUGS (3)
  1. CHANTIX [Suspect]
     Indication: SMOKING CESSATION THERAPY
     Dates: start: 20070724, end: 20070725
  2. ANTINEOPLASTIC AGENTS [Suspect]
     Indication: NEOPLASM MALIGNANT
  3. XANAX [Concomitant]
     Indication: ANXIETY

REACTIONS (4)
  - DIZZINESS [None]
  - FEELING ABNORMAL [None]
  - SLUGGISHNESS [None]
  - SOMNOLENCE [None]
